FAERS Safety Report 24802006 (Version 1)
Quarter: 2025Q1

REPORT INFORMATION
  Report Type: Spontaneous
  Country: US (occurrence: US)
  Receive Date: 20250102
  Receipt Date: 20250102
  Transmission Date: 20250409
  Serious: Yes (Hospitalization, Other)
  Sender: GRAVITI PHARMACEUTICALS PRIVATE LIMITED
  Company Number: US-GRAVITIPHARMA-GRA-2412-US-LIT-0704

PATIENT
  Age: 15 Year
  Sex: Female
  Weight: 67.2 kg

DRUGS (1)
  1. BUPROPION HYDROCHLORIDE [Suspect]
     Active Substance: BUPROPION HYDROCHLORIDE
     Indication: Product used for unknown indication
     Route: 065

REACTIONS (14)
  - Generalised tonic-clonic seizure [Recovered/Resolved]
  - Vomiting [Recovered/Resolved]
  - Somnolence [Recovered/Resolved]
  - Speech disorder [Recovered/Resolved]
  - Sinus tachycardia [Recovered/Resolved]
  - Electrocardiogram QT prolonged [Recovered/Resolved]
  - Electrocardiogram QRS complex prolonged [Recovered/Resolved]
  - Respiratory alkalosis [Recovered/Resolved]
  - Metabolic acidosis [Recovered/Resolved]
  - Mental status changes [Recovered/Resolved]
  - Postictal state [Recovered/Resolved]
  - Myoclonus [Recovered/Resolved]
  - Hypertransaminasaemia [Recovered/Resolved]
  - Intentional overdose [Unknown]
